FAERS Safety Report 8155653-1 (Version None)
Quarter: 2012Q1

REPORT INFORMATION
  Report Type: 
  Country: None (occurrence: None)
  Receive Date: 20120222
  Receipt Date: 20120217
  Transmission Date: 20120608
  Serious: No
  Sender: FDA-Public Use
  Company Number: US-PFIZER INC-2011178509

PATIENT
  Sex: Female
  Weight: 104.31 kg

DRUGS (2)
  1. PEPCID [Concomitant]
     Dosage: UNK
  2. AVINZA [Suspect]
     Indication: PAIN
     Dosage: 40 MG, 1X/DAY
     Route: 048
     Dates: start: 20060101

REACTIONS (3)
  - HYPERHIDROSIS [None]
  - WITHDRAWAL SYNDROME [None]
  - DRUG EFFECT DECREASED [None]
